FAERS Safety Report 14940708 (Version 2)
Quarter: 2018Q2

REPORT INFORMATION
  Report Type: Report from Study
  Country: US (occurrence: US)
  Receive Date: 20180525
  Receipt Date: 20180607
  Transmission Date: 20180711
  Serious: Yes (Hospitalization, Other)
  Sender: FDA-Public Use
  Company Number: US-BRISTOL-MYERS SQUIBB COMPANY-BMS-2018-046872

PATIENT
  Sex: Male
  Weight: 79.36 kg

DRUGS (2)
  1. IPILIMUMAB [Suspect]
     Active Substance: IPILIMUMAB
     Indication: MALIGNANT MELANOMA
     Dosage: UNK, Q3WK
     Route: 065
     Dates: start: 201701
  2. NIVOLUMAB [Suspect]
     Active Substance: NIVOLUMAB
     Indication: MALIGNANT MELANOMA
     Dosage: 240 MG, Q2WK
     Route: 042
     Dates: start: 201701

REACTIONS (9)
  - Drug ineffective [Unknown]
  - Weight decreased [Unknown]
  - Skin exfoliation [Unknown]
  - Muscle atrophy [Unknown]
  - Skin hyperpigmentation [Unknown]
  - Haemoglobin decreased [Unknown]
  - Sunburn [Unknown]
  - Tumour associated fever [Unknown]
  - Hair colour changes [Unknown]
